FAERS Safety Report 10461942 (Version 2)
Quarter: 2014Q4

REPORT INFORMATION
  Report Type: Report from Study
  Country: BR (occurrence: BR)
  Receive Date: 20140918
  Receipt Date: 20141101
  Transmission Date: 20150528
  Serious: Yes (Death, Other)
  Sender: FDA-Public Use
  Company Number: PHHY2014BR121303

PATIENT
  Sex: Female
  Weight: 60 kg

DRUGS (2)
  1. MEMANTINE [Suspect]
     Active Substance: MEMANTINE
     Indication: PRODUCT USED FOR UNKNOWN INDICATION
     Route: 065
  2. EXELON PATCH [Suspect]
     Active Substance: RIVASTIGMINE
     Indication: DEMENTIA ALZHEIMER^S TYPE
     Dosage: 1 DF (1 ADHESIVE), QD
     Route: 062
     Dates: start: 2011, end: 201201

REACTIONS (2)
  - Pulmonary embolism [Fatal]
  - Drug ineffective [Unknown]
